FAERS Safety Report 7679151 (Version 3)
Quarter: 2013Q3

REPORT INFORMATION
  Report Type: Spontaneous
  Country: CA (occurrence: CA)
  Receive Date: 20101118
  Receipt Date: 20130924
  Transmission Date: 20140515
  Serious: Yes (Other)
  Sender: FDA-Public Use
  Company Number: CA-RANBAXY-2010US-39323

PATIENT
  Age: 17 Year
  Sex: Female

DRUGS (10)
  1. ABACAVIR +LAMIVUDINE+ZIDOVUDINE [Suspect]
     Indication: HIV INFECTION
     Dosage: 1 DF, BID
     Route: 065
  2. TENOFOVIR [Suspect]
     Indication: HIV INFECTION
     Dosage: 300 MG, QD
     Route: 065
  3. ZIDOVUDINE [Suspect]
     Indication: HIV INFECTION
     Dosage: UNK
     Route: 042
  4. DARUNAVIR [Suspect]
     Indication: HIV INFECTION
     Dosage: 600 MG, BID
     Route: 065
  5. ETRAVIRINE [Suspect]
     Indication: HIV INFECTION
     Dosage: 200 MG, BID
     Route: 065
  6. RITONAVIR [Suspect]
     Indication: HIV INFECTION
     Dosage: 100 MG, BID
     Route: 065
  7. AMLODIPINE [Concomitant]
     Indication: ESSENTIAL HYPERTENSION
     Dosage: UNK
     Route: 065
  8. AZITHROMYCIN [Concomitant]
     Indication: BACTERAEMIA
     Dosage: UNK
     Route: 065
  9. CEFOTAXIME [Concomitant]
     Indication: PNEUMONIA PNEUMOCOCCAL
     Dosage: UNK
     Route: 065
  10. MONOPRIL [Concomitant]
     Indication: ESSENTIAL HYPERTENSION
     Dosage: UNK
     Route: 065

REACTIONS (1)
  - Exposure during pregnancy [Unknown]
